FAERS Safety Report 9570451 (Version 1)
Quarter: 2013Q3

REPORT INFORMATION
  Report Type: Spontaneous
  Country: US (occurrence: None)
  Receive Date: 20130926
  Receipt Date: 20130926
  Transmission Date: 20140515
  Serious: Yes (Life-Threatening, Hospitalization, Disabling)
  Sender: FDA-Public Use
  Company Number: None

PATIENT
  Age: 58 Year
  Sex: Female
  Weight: 65.32 kg

DRUGS (1)
  1. ELAVIL [Suspect]
     Dosage: AS NEEDED FOR PAIN 1-2 DAILY?AS NEEDED?TAKEN BY MOUTH
     Route: 048
     Dates: start: 20130412, end: 20130415

REACTIONS (3)
  - Suicide attempt [None]
  - Delirium [None]
  - Drug interaction [None]
